FAERS Safety Report 21124668 (Version 3)
Quarter: 2022Q4

REPORT INFORMATION
  Report Type: Report from Study
  Country: CO (occurrence: CO)
  Receive Date: 20220725
  Receipt Date: 20221020
  Transmission Date: 20230113
  Serious: Yes (Other)
  Sender: FDA-Public Use
  Company Number: CO-NOVOPROD-939525

PATIENT
  Age: 65 Year
  Sex: Female
  Weight: 90 kg

DRUGS (1)
  1. LEVEMIR [Suspect]
     Active Substance: INSULIN DETEMIR
     Indication: Type 2 diabetes mellitus
     Dosage: 20 IU, QD
     Route: 058
     Dates: start: 2015

REACTIONS (2)
  - Product packaging quantity issue [Recovered/Resolved]
  - Blood glucose increased [Recovered/Resolved]

NARRATIVE: CASE EVENT DATE: 20220701
